FAERS Safety Report 8356356-0 (Version None)
Quarter: 2012Q2

REPORT INFORMATION
  Report Type: 
  Country: None (occurrence: None)
  Receive Date: 20120514
  Receipt Date: 20110425
  Transmission Date: 20120825
  Serious: No
  Sender: FDA-Public Use
  Company Number: US-TEVA-2011002039

PATIENT
  Sex: Male

DRUGS (4)
  1. HYDROCODONE BITARTRATE [Concomitant]
  2. MULTI-VITAMINS [Concomitant]
  3. SAVELLA [Concomitant]
     Dates: start: 20110201
  4. NUVIGIL [Suspect]
     Indication: CIRCADIAN RHYTHM SLEEP DISORDER
     Route: 048
     Dates: start: 20110415

REACTIONS (1)
  - DRUG INEFFECTIVE [None]
